FAERS Safety Report 21164508 (Version 2)
Quarter: 2022Q3

REPORT INFORMATION
  Report Type: Spontaneous
  Country: US (occurrence: US)
  Receive Date: 20220803
  Receipt Date: 20220829
  Transmission Date: 20221026
  Serious: Yes (Hospitalization, Other)
  Sender: FDA-Public Use
  Company Number: US-SA-SAC20220729001200

PATIENT
  Age: 65 Year
  Sex: Male
  Weight: 109.75 kg

DRUGS (1)
  1. DUPIXENT [Suspect]
     Active Substance: DUPILUMAB
     Indication: Dermatitis atopic
     Dosage: 300 MG, QOW
     Route: 058

REACTIONS (3)
  - Sepsis [Not Recovered/Not Resolved]
  - Infection [Unknown]
  - Asthenia [Not Recovered/Not Resolved]
